FAERS Safety Report 7874532-8 (Version None)
Quarter: 2011Q4

REPORT INFORMATION
  Report Type: 
  Country: None (occurrence: None)
  Receive Date: 20111030
  Receipt Date: 20111026
  Transmission Date: 20120403
  Serious: Yes (Death, Life-Threatening, Hospitalization)
  Sender: FDA-Public Use
  Company Number: RS-GENZYME-CAMP-1001716

PATIENT
  Sex: Male
  Weight: 82 kg

DRUGS (29)
  1. AMINOPHYLLIN TAB [Concomitant]
     Indication: PLATELET COUNT DECREASED
  2. NOVALGETAL [Concomitant]
     Indication: FEBRILE NEUTROPENIA
  3. FEBRICET [Concomitant]
     Indication: FEBRILE NEUTROPENIA
  4. OMEPROL [Concomitant]
     Indication: FEBRILE NEUTROPENIA
     Dosage: 150 MG, QD
     Route: 048
     Dates: start: 20110805, end: 20110807
  5. METHYLPREDNISOLONE [Concomitant]
     Dosage: 40 MG, BID
     Route: 042
     Dates: start: 20110805, end: 20110807
  6. FORCAS [Concomitant]
     Indication: FEBRILE NEUTROPENIA
  7. METHYLPREDNISOLONE [Concomitant]
     Dosage: 80 MG, QD
     Route: 042
     Dates: start: 20110725, end: 20110807
  8. METHYLPREDNISOLONE [Concomitant]
     Indication: PLATELET COUNT DECREASED
     Dosage: UNK
  9. H2 BLOCKER [Concomitant]
     Indication: SEPSIS
  10. NOVALGETAL [Concomitant]
     Indication: AUTOIMMUNE PANCYTOPENIA
  11. OMEPROL [Concomitant]
     Indication: AUTOIMMUNE PANCYTOPENIA
  12. ALEMTUZUMAB [Suspect]
     Dosage: 12 MG, QDX5
     Route: 042
     Dates: start: 20081222, end: 20081226
  13. CITERAL [Concomitant]
     Indication: FEBRILE NEUTROPENIA
  14. RANITIDINE HCL [Concomitant]
     Indication: AUTOIMMUNE PANCYTOPENIA
  15. ALEMTUZUMAB [Suspect]
     Indication: MULTIPLE SCLEROSIS
     Dosage: 12 MG, QDX3
     Route: 042
     Dates: start: 20091222, end: 20091224
  16. NEUPOGEN [Concomitant]
     Indication: PLATELET COUNT DECREASED
     Dosage: 48 MU, QD
     Route: 058
     Dates: start: 20110718, end: 20110718
  17. AMINOPHYLLIN TAB [Concomitant]
     Indication: SEPSIS
     Dosage: 250 MG, BID
     Route: 042
     Dates: start: 20110805, end: 20110807
  18. FEBRICET [Concomitant]
     Indication: PYREXIA
     Dosage: UNK
     Route: 048
     Dates: start: 20110805, end: 20110807
  19. METHYLPREDNISOLONE [Concomitant]
     Indication: FEBRILE NEUTROPENIA
     Dosage: 100 MG, QD
     Route: 042
     Dates: start: 20110715, end: 20110724
  20. IMMUNE GLOBULIN NOS [Concomitant]
     Indication: PLATELET COUNT DECREASED
     Dosage: 30 G, QD
     Route: 042
     Dates: start: 20110717, end: 20110721
  21. FORCAS [Concomitant]
     Indication: SEPSIS
     Dosage: 2 G, BID
     Route: 042
     Dates: start: 20110805, end: 20110807
  22. CITERAL [Concomitant]
     Indication: AUTOIMMUNE PANCYTOPENIA
  23. RANITIDINE HCL [Concomitant]
     Indication: FEBRILE NEUTROPENIA
     Dosage: 150 MG, BID
     Route: 042
     Dates: start: 20110805, end: 20110807
  24. METHYLPREDNISOLONE [Concomitant]
     Indication: AUTOIMMUNE PANCYTOPENIA
     Dosage: 80 MG, QD
     Route: 042
     Dates: start: 20110708, end: 20110714
  25. NEUPOGEN [Concomitant]
     Dosage: UNK
  26. CITERAL [Concomitant]
     Indication: SEPSIS
     Dosage: 200 MG, BID
     Route: 042
     Dates: start: 20070805, end: 20070807
  27. FORCAS [Concomitant]
     Indication: AUTOIMMUNE PANCYTOPENIA
  28. NOVALGETAL [Concomitant]
     Indication: PYREXIA
     Dosage: 2.5 G, BID
     Route: 042
     Dates: start: 20070805, end: 20110807
  29. FEBRICET [Concomitant]
     Indication: AUTOIMMUNE PANCYTOPENIA

REACTIONS (3)
  - AUTOIMMUNE PANCYTOPENIA [None]
  - FEBRILE NEUTROPENIA [None]
  - SEPSIS [None]
